FAERS Safety Report 11393313 (Version 2)
Quarter: 2016Q4

REPORT INFORMATION
  Report Type: Report from Study
  Country: PL (occurrence: PL)
  Receive Date: 20150818
  Receipt Date: 20161021
  Transmission Date: 20170206
  Serious: Yes (Hospitalization)
  Sender: FDA-Public Use
  Company Number: PL-TEVA-586702USA

PATIENT
  Age: 51 Year
  Sex: Male

DRUGS (56)
  1. BENDAMUSTINE HYDROCHLORIDE. [Suspect]
     Active Substance: BENDAMUSTINE HYDROCHLORIDE
     Indication: CHRONIC LYMPHOCYTIC LEUKAEMIA
     Dosage: 90 MG/M2, CYCLIC, C1D1
     Route: 042
     Dates: start: 20141231, end: 20141231
  2. DEXAVEN [Concomitant]
     Active Substance: DEXAMETHASONE
     Dosage: 4 MG, TOTAL DOSE (SINGLE DOSE)
     Route: 042
     Dates: start: 20150102, end: 20150102
  3. DEXAVEN [Concomitant]
     Active Substance: DEXAMETHASONE
     Dosage: 20 MG, TOTAL DOSE (SINGLE DOSE)
     Route: 042
     Dates: start: 20150114, end: 20150114
  4. PARACETAMOL [Concomitant]
     Active Substance: ACETAMINOPHEN
     Indication: PRODUCT USED FOR UNKNOWN INDICATION
     Route: 048
     Dates: start: 20141231, end: 20150104
  5. PARACETAMOL [Concomitant]
     Active Substance: ACETAMINOPHEN
     Route: 048
     Dates: start: 20150211, end: 20150211
  6. PYRALGIN                           /06276704/ [Concomitant]
     Indication: PRODUCT USED FOR UNKNOWN INDICATION
     Dosage: 2.5 MG, TOTAL DOSE (SINGLE DOSE)
     Route: 042
     Dates: start: 20150102, end: 20150102
  7. DANAZOL. [Concomitant]
     Active Substance: DANAZOL
     Indication: PRODUCT USED FOR UNKNOWN INDICATION
     Route: 048
     Dates: start: 20150128, end: 20150702
  8. DANAZOL. [Concomitant]
     Active Substance: DANAZOL
     Route: 048
     Dates: start: 20150703, end: 20150707
  9. ENCORTON                           /00044701/ [Concomitant]
     Active Substance: PREDNISONE
     Indication: PRODUCT USED FOR UNKNOWN INDICATION
     Route: 048
     Dates: start: 20150212, end: 20150408
  10. ENCORTON                           /00044701/ [Concomitant]
     Active Substance: PREDNISONE
     Route: 048
     Dates: start: 20150708, end: 20150712
  11. BENDAMUSTINE HYDROCHLORIDE. [Suspect]
     Active Substance: BENDAMUSTINE HYDROCHLORIDE
     Dosage: 50 MG/M2, CYCLIC,C3D1
     Route: 042
     Dates: start: 20150311, end: 20150311
  12. DEXAVEN [Concomitant]
     Active Substance: DEXAMETHASONE
     Dosage: 20 MG, TOTAL DOSE (SINGLE DOSE)
     Route: 042
     Dates: start: 20150311, end: 20150311
  13. CLEMASTINE [Concomitant]
     Active Substance: CLEMASTINE
     Dosage: 2 MG, TOTAL DOSE (SINGLE DOSE)
     Route: 048
     Dates: start: 20150114, end: 20150114
  14. KLACID                             /00984602/ [Concomitant]
     Indication: PRODUCT USED FOR UNKNOWN INDICATION
     Route: 048
     Dates: start: 20150102, end: 20150107
  15. MILURIT [Concomitant]
     Active Substance: ALLOPURINOL
     Route: 048
     Dates: start: 20150128, end: 20150208
  16. ENCORTON                           /00044701/ [Concomitant]
     Active Substance: PREDNISONE
     Route: 048
     Dates: start: 20150703, end: 20150707
  17. BENDAMUSTINE HYDROCHLORIDE. [Suspect]
     Active Substance: BENDAMUSTINE HYDROCHLORIDE
     Dosage: 90 MG/M2, CYCLIC, C1D2
     Route: 042
     Dates: start: 20150101, end: 20150101
  18. OBINUTUZUMAB [Suspect]
     Active Substance: OBINUTUZUMAB
     Dosage: 1000 MG, CYCLIC, C2D1
     Route: 042
     Dates: start: 20150211, end: 20150211
  19. CLEMASTINE [Concomitant]
     Active Substance: CLEMASTINE
     Indication: PRODUCT USED FOR UNKNOWN INDICATION
     Dosage: 2 MG, TOTAL DOSE (SINGLE DOSE)
     Route: 048
     Dates: start: 20141231, end: 20141231
  20. PARACETAMOL [Concomitant]
     Active Substance: ACETAMINOPHEN
     Route: 048
     Dates: start: 20150311, end: 20150311
  21. FASTURTEC [Concomitant]
     Active Substance: RASBURICASE
     Indication: PRODUCT USED FOR UNKNOWN INDICATION
     Dosage: 4.5 MG, TOTAL DOSE (SINGLE DOSE)
     Route: 042
     Dates: start: 20150102, end: 20150102
  22. FASTURTEC [Concomitant]
     Active Substance: RASBURICASE
     Dosage: 3 MG, TOTAL DOSE (SINGLE DOSE)
     Route: 042
     Dates: start: 20150103, end: 20150103
  23. BIORACEF [Concomitant]
     Indication: PRODUCT USED FOR UNKNOWN INDICATION
     Route: 048
     Dates: start: 20150107, end: 20150107
  24. FOLIC ACID. [Concomitant]
     Active Substance: FOLIC ACID
     Indication: PRODUCT USED FOR UNKNOWN INDICATION
     Route: 048
     Dates: start: 20150128, end: 20150702
  25. ENCORTON                           /00044701/ [Concomitant]
     Active Substance: PREDNISONE
     Route: 048
     Dates: start: 20150409, end: 20150702
  26. NACL [Concomitant]
     Active Substance: SODIUM CHLORIDE
     Indication: PRODUCT USED FOR UNKNOWN INDICATION
     Route: 042
     Dates: start: 20150102, end: 20150102
  27. NACL [Concomitant]
     Active Substance: SODIUM CHLORIDE
     Route: 042
     Dates: start: 20150103, end: 20150103
  28. BENDAMUSTINE HYDROCHLORIDE. [Suspect]
     Active Substance: BENDAMUSTINE HYDROCHLORIDE
     Dosage: 50 MG/M2, CYCLIC, C3D2
     Route: 042
     Dates: start: 20150312
  29. DEXAMETHASONE. [Concomitant]
     Active Substance: DEXAMETHASONE
     Indication: PRODUCT USED FOR UNKNOWN INDICATION
     Dosage: 20 MG, TOTAL DOSE (SINGLE DOSE)
     Route: 048
     Dates: start: 20141230, end: 20141230
  30. DEXAVEN [Concomitant]
     Active Substance: DEXAMETHASONE
     Dosage: 20 MG, TOTAL DOSE (SINGLE DOSE)
     Route: 042
     Dates: start: 20150101, end: 20150101
  31. DEXAVEN [Concomitant]
     Active Substance: DEXAMETHASONE
     Dosage: 20 MG, TOTAL DOSE (SINGLE DOSE)
     Route: 042
     Dates: start: 20150107, end: 20150107
  32. MILURIT [Concomitant]
     Active Substance: ALLOPURINOL
     Indication: PRODUCT USED FOR UNKNOWN INDICATION
     Route: 048
     Dates: start: 20150103, end: 20150127
  33. BENDAMUSTINE HYDROCHLORIDE. [Suspect]
     Active Substance: BENDAMUSTINE HYDROCHLORIDE
     Dosage: 70 MG/M2, CYCLIC, C2D1
     Route: 042
     Dates: start: 20150211, end: 20150211
  34. OBINUTUZUMAB [Suspect]
     Active Substance: OBINUTUZUMAB
     Dosage: 1000 MG, CYCLIC, C1D8
     Route: 042
     Dates: start: 20150107, end: 20150107
  35. NIVESTIM [Concomitant]
     Active Substance: FILGRASTIM
     Indication: PRODUCT USED FOR UNKNOWN INDICATION
     Dosage: 0.48 MG, ONCE DAILY
     Route: 058
     Dates: start: 20150105, end: 20150106
  36. DEXAVEN [Concomitant]
     Active Substance: DEXAMETHASONE
     Dosage: 20 MG, TOTAL DOSE (SINGLE DOSE)
     Route: 042
     Dates: start: 20150211, end: 20150211
  37. CEFUROXIME. [Concomitant]
     Active Substance: CEFUROXIME
     Indication: PRODUCT USED FOR UNKNOWN INDICATION
     Route: 042
     Dates: start: 20150102, end: 20150107
  38. LACIDOFIL                          /01699201/ [Concomitant]
     Indication: PRODUCT USED FOR UNKNOWN INDICATION
     Dosage: UNK UNK, TWICE DAILY
     Route: 048
     Dates: start: 20150102, end: 20150107
  39. CYCLONAMINE [Concomitant]
     Active Substance: ETHAMSYLATE
     Indication: PRODUCT USED FOR UNKNOWN INDICATION
     Route: 048
     Dates: start: 20150128, end: 20150603
  40. VITAMIN B6 [Concomitant]
     Active Substance: PYRIDOXINE HYDROCHLORIDE
     Indication: PRODUCT USED FOR UNKNOWN INDICATION
     Route: 048
     Dates: start: 20150128, end: 20150702
  41. OBINUTUZUMAB [Suspect]
     Active Substance: OBINUTUZUMAB
     Indication: CHRONIC LYMPHOCYTIC LEUKAEMIA
     Dosage: 100 MG, CYCLIC, C1D1
     Route: 042
     Dates: start: 20141231, end: 20141231
  42. CLEMASTINE [Concomitant]
     Active Substance: CLEMASTINE
     Dosage: 2 MG, TOTAL DOSE (SINGLE DOSE)
     Route: 048
     Dates: start: 20150311, end: 20150311
  43. PLATELETS [Concomitant]
     Active Substance: HUMAN PLATELET, ALLOGENIC
     Dosage: 500 ML, (1 IN 1 TOTAL)
     Route: 042
     Dates: start: 20150211, end: 20150211
  44. OBINUTUZUMAB [Suspect]
     Active Substance: OBINUTUZUMAB
     Dosage: 1000 MG, CYCLIC, C1D15
     Route: 042
     Dates: start: 20150114, end: 20150114
  45. OBINUTUZUMAB [Suspect]
     Active Substance: OBINUTUZUMAB
     Dosage: 1000 MG, CYCLIC, C3D1
     Route: 042
     Dates: start: 20150311
  46. DEXAVEN [Concomitant]
     Active Substance: DEXAMETHASONE
     Indication: PRODUCT USED FOR UNKNOWN INDICATION
     Dosage: 20 MG, TOTAL DOSE (SINGLE DOSE)
     Route: 042
     Dates: start: 20141231, end: 20141231
  47. CLEMASTINE [Concomitant]
     Active Substance: CLEMASTINE
     Dosage: 2 MG, TOTAL DOSE (SINGLE DOSE)
     Route: 048
     Dates: start: 20150107, end: 20150107
  48. CLEMASTINE [Concomitant]
     Active Substance: CLEMASTINE
     Dosage: 2 MG, TOTAL DOSE (SINGLE DOSE)
     Route: 048
     Dates: start: 20150211, end: 20150211
  49. PARACETAMOL [Concomitant]
     Active Substance: ACETAMINOPHEN
     Route: 048
     Dates: start: 20150107, end: 20150107
  50. MILURIT [Concomitant]
     Active Substance: ALLOPURINOL
     Route: 048
     Dates: start: 20150217, end: 20150310
  51. ENCORTON                           /00044701/ [Concomitant]
     Active Substance: PREDNISONE
     Route: 048
     Dates: start: 20150713, end: 20150717
  52. BENDAMUSTINE HYDROCHLORIDE. [Suspect]
     Active Substance: BENDAMUSTINE HYDROCHLORIDE
     Dosage: UNK UNK, CYCLIC 2 DAY 2
     Route: 042
     Dates: start: 20150212, end: 20150212
  53. OBINUTUZUMAB [Suspect]
     Active Substance: OBINUTUZUMAB
     Dosage: 900 MG, CYCLIC, C1D2
     Route: 042
     Dates: start: 20150101, end: 20150101
  54. CLEMASTINE [Concomitant]
     Active Substance: CLEMASTINE
     Dosage: 2 MG, TOTAL DOSE (SINGLE DOSE)
     Route: 048
     Dates: start: 20150101, end: 20150101
  55. PARACETAMOL [Concomitant]
     Active Substance: ACETAMINOPHEN
     Route: 048
     Dates: start: 20150114, end: 20150114
  56. PLATELETS [Concomitant]
     Active Substance: HUMAN PLATELET, ALLOGENIC
     Indication: PRODUCT USED FOR UNKNOWN INDICATION
     Dosage: 300 ML, (1 IN 1 TOTAL)
     Route: 042
     Dates: start: 20150209, end: 20150209

REACTIONS (1)
  - Interstitial lung disease [Not Recovered/Not Resolved]

NARRATIVE: CASE EVENT DATE: 20150707
